FAERS Safety Report 25627717 (Version 3)
Quarter: 2025Q3

REPORT INFORMATION
  Report Type: Report from Study
  Country: US (occurrence: US)
  Receive Date: 20250731
  Receipt Date: 20250917
  Transmission Date: 20251021
  Serious: No
  Sender: SUNOVION
  Company Number: US-SUMITOMO PHARMA SWITZERLAND GMBH-2025SPA009381

PATIENT
  Age: 78 Year
  Sex: Male

DRUGS (12)
  1. ORGOVYX [Suspect]
     Active Substance: RELUGOLIX
     Indication: Prostate cancer
     Route: 048
  2. ORGOVYX [Suspect]
     Active Substance: RELUGOLIX
     Route: 048
  3. ASPIRIN [Concomitant]
     Active Substance: ASPIRIN
  4. VITAMIN B12 [Concomitant]
     Active Substance: CYANOCOBALAMIN
  5. ERLEADA [Concomitant]
     Active Substance: APALUTAMIDE
  6. FINASTERIDE [Concomitant]
     Active Substance: FINASTERIDE
  7. FLOMAX [Concomitant]
     Active Substance: TAMSULOSIN HYDROCHLORIDE
  8. HYDROCHLOROTHIAZIDE [Concomitant]
     Active Substance: HYDROCHLOROTHIAZIDE
  9. METOPROLOL SUCCINATE [Concomitant]
     Active Substance: METOPROLOL SUCCINATE
  10. HYDROCORTISONE [Concomitant]
     Active Substance: HYDROCORTISONE
  11. METRONIDAZOLE [Concomitant]
     Active Substance: METRONIDAZOLE
  12. CLARITIN [Concomitant]
     Active Substance: LORATADINE

REACTIONS (3)
  - Pruritus [Unknown]
  - Dry skin [Unknown]
  - Fatigue [Not Recovered/Not Resolved]
